FAERS Safety Report 19758158 (Version 2)
Quarter: 2021Q3

REPORT INFORMATION
  Report Type: Spontaneous
  Country: BR (occurrence: BR)
  Receive Date: 20210827
  Receipt Date: 20210917
  Transmission Date: 20211014
  Serious: Yes (Hospitalization, Other)
  Sender: FDA-Public Use
  Company Number: BR-BIOMARINAP-BR-2021-138266

PATIENT
  Age: 13 Year
  Sex: Female
  Weight: 16.7 kg

DRUGS (2)
  1. NAGLAZYME [Suspect]
     Active Substance: GALSULFASE
     Dosage: UNK, QW
     Route: 042
     Dates: start: 20120510
  2. NAGLAZYME [Suspect]
     Active Substance: GALSULFASE
     Indication: MUCOPOLYSACCHARIDOSIS VI
     Dosage: UNK, QW
     Route: 042
     Dates: start: 20200929

REACTIONS (5)
  - Hydrocephalus [Unknown]
  - General physical health deterioration [Unknown]
  - Cachexia [Unknown]
  - Gait disturbance [Unknown]
  - Bedridden [Unknown]
